FAERS Safety Report 22246743 (Version 1)
Quarter: 2023Q2

REPORT INFORMATION
  Report Type: Spontaneous
  Country: CA (occurrence: CA)
  Receive Date: 20230424
  Receipt Date: 20230424
  Transmission Date: 20230722
  Serious: Yes (Death)
  Sender: FDA-Public Use
  Company Number: CA-PFIZER INC-202300165141

PATIENT

DRUGS (2)
  1. TRIAZOLAM [Interacting]
     Active Substance: TRIAZOLAM
     Dosage: UNK
     Route: 048
  2. DIAZEPAM [Interacting]
     Active Substance: DIAZEPAM
     Dosage: UNK

REACTIONS (1)
  - Drug interaction [Fatal]
